FAERS Safety Report 8873526 (Version 1)
Quarter: 2012Q4

REPORT INFORMATION
  Report Type: 
  Country: US (occurrence: US)
  Receive Date: 20121026
  Receipt Date: 20121026
  Transmission Date: 20130627
  Serious: No
  Sender: FDA-Public Use
  Company Number: US-AMGEN-USASP2012045722

PATIENT
  Sex: Female
  Weight: 54.42 kg

DRUGS (18)
  1. ENBREL [Suspect]
     Indication: PRODUCT USED FOR UNKNOWN INDICATION
     Dosage: 50 mg/ml, qwk
     Route: 058
  2. LIVALO [Concomitant]
     Dosage: 4 mg, UNK
  3. MOTRIN [Concomitant]
     Dosage: 400 mg, UNK
  4. PLAQUENIL                          /00072602/ [Concomitant]
     Dosage: 200 mg, UNK
  5. PREDNISONE [Concomitant]
     Dosage: 10 mg, UNK
  6. ULTRAM ER [Concomitant]
     Dosage: 200 mg, UNK
  7. NIASPAN [Concomitant]
     Dosage: NIASPAN TAB 500MG ER
  8. ATENOLOL [Concomitant]
     Dosage: 100 mg, UNK
  9. ASPIRIN [Concomitant]
     Dosage: 325 mg, UNK
  10. ZANTAC [Concomitant]
     Dosage: 75 mg, UNK
  11. FLEXERIL                           /00428402/ [Concomitant]
     Dosage: 5 mg, UNK
  12. CALCIUM [Concomitant]
     Dosage: 500 mg, UNK
  13. FLAXSEED OIL [Concomitant]
     Dosage: UNK
  14. YEAST                              /00212501/ [Concomitant]
     Dosage: RED YEAST TAB
  15. VESICARE [Concomitant]
     Dosage: 5 mg, UNK
  16. MULTIVITAMIN                       /00097801/ [Concomitant]
     Dosage: UNK
  17. FOLIC ACID [Concomitant]
     Dosage: 20 mg, UNK
  18. OMEGA 3                            /01334101/ [Concomitant]
     Dosage: 1000 mg, UNK

REACTIONS (3)
  - Pain in extremity [Unknown]
  - Myalgia [Unknown]
  - Paraesthesia [Unknown]
